FAERS Safety Report 16111470 (Version 2)
Quarter: 2019Q2

REPORT INFORMATION
  Report Type: Spontaneous
  Country: US (occurrence: US)
  Receive Date: 20190325
  Receipt Date: 20190408
  Transmission Date: 20190711
  Serious: No
  Sender: FDA-Public Use
  Company Number: US-BAYER-2019-058070

PATIENT
  Age: 58 Year
  Sex: Female

DRUGS (1)
  1. BETASERON [Suspect]
     Active Substance: INTERFERON BETA-1B
     Indication: MULTIPLE SCLEROSIS
     Dosage: 0.3 MG

REACTIONS (4)
  - Rash [Recovered/Resolved]
  - Pruritus [Recovered/Resolved]
  - Feeling hot [None]
  - Flushing [None]
